FAERS Safety Report 9867505 (Version 2)
Quarter: 2014Q2

REPORT INFORMATION
  Report Type: Spontaneous
  Country: US (occurrence: US)
  Receive Date: 20140204
  Receipt Date: 20140415
  Transmission Date: 20141212
  Serious: Yes (Other)
  Sender: FDA-Public Use
  Company Number: US-SA-2014SA012868

PATIENT
  Age: 56 Year
  Sex: Female

DRUGS (1)
  1. RENVELA [Suspect]
     Indication: HYPERPHOSPHATAEMIA
     Dosage: 05 TABLETS WITH EACH MEAL AND ONE TABLET WITH SNACKS
     Route: 048
     Dates: start: 2011

REACTIONS (1)
  - Gastrointestinal disorder [Recovered/Resolved]
